FAERS Safety Report 24582693 (Version 4)
Quarter: 2025Q1

REPORT INFORMATION
  Report Type: Report from Study
  Country: CL (occurrence: CL)
  Receive Date: 20241106
  Receipt Date: 20250106
  Transmission Date: 20250408
  Serious: Yes (Disabling, Other)
  Sender: ROCHE
  Company Number: CL-ROCHE-10000107611

PATIENT
  Age: 55 Year
  Sex: Female
  Weight: 77 kg

DRUGS (7)
  1. OCRELIZUMAB [Suspect]
     Active Substance: OCRELIZUMAB
     Indication: Multiple sclerosis
     Dosage: 600MG EVERY 6 MONTHS, EV
     Route: 042
     Dates: start: 2020
  2. RIVOTRIL [Suspect]
     Active Substance: CLONAZEPAM
     Indication: Product used for unknown indication
     Route: 065
     Dates: start: 2001
  3. LANSOPRAZOLE [Concomitant]
     Active Substance: LANSOPRAZOLE
     Dates: start: 2020
  4. DULOXETINE [Concomitant]
     Active Substance: DULOXETINE
     Dates: start: 2020
  5. PREGABALIN [Concomitant]
     Active Substance: PREGABALIN
     Dates: start: 2020
  6. ATORVASTATIN [Concomitant]
     Active Substance: ATORVASTATIN
  7. METHYLPREDNISOLONE [Concomitant]
     Active Substance: METHYLPREDNISOLONE

REACTIONS (20)
  - Food allergy [Not Recovered/Not Resolved]
  - Multiple sclerosis [Not Recovered/Not Resolved]
  - Bronchitis [Unknown]
  - Walking aid user [Unknown]
  - Fibromyalgia [Not Recovered/Not Resolved]
  - Hypertension [Not Recovered/Not Resolved]
  - Nasopharyngitis [Not Recovered/Not Resolved]
  - Immunodeficiency [Not Recovered/Not Resolved]
  - Blood triglycerides increased [Not Recovered/Not Resolved]
  - Tachycardia [Not Recovered/Not Resolved]
  - Cough [Not Recovered/Not Resolved]
  - Sinusitis [Not Recovered/Not Resolved]
  - Liver function test abnormal [Not Recovered/Not Resolved]
  - Asthenia [Unknown]
  - Asthenia [Unknown]
  - Memory impairment [Not Recovered/Not Resolved]
  - Hyperaesthesia [Unknown]
  - Visual acuity reduced [Unknown]
  - Blood phosphorus decreased [Unknown]
  - Protein total increased [Unknown]

NARRATIVE: CASE EVENT DATE: 20210101
